FAERS Safety Report 12318503 (Version 3)
Quarter: 2016Q3

REPORT INFORMATION
  Report Type: Report from Study
  Country: AR (occurrence: AR)
  Receive Date: 20160429
  Receipt Date: 20160805
  Transmission Date: 20161109
  Serious: Yes (Life-Threatening, Hospitalization)
  Sender: FDA-Public Use
  Company Number: AR-R-PHARM US LLC-2016RPM00006

PATIENT
  Age: 74 Year
  Sex: Female

DRUGS (4)
  1. IXABEPILONE [Suspect]
     Active Substance: IXABEPILONE
     Dosage: 45 MG, ONCE
     Route: 042
     Dates: start: 20160531, end: 20160531
  2. IXABEPILONE [Suspect]
     Active Substance: IXABEPILONE
     Dosage: 45 MG, ONCE
     Route: 042
     Dates: start: 20151126, end: 20151126
  3. IXABEPILONE [Suspect]
     Active Substance: IXABEPILONE
     Dosage: 45 MG, ONCE
     Route: 042
     Dates: start: 20160105, end: 20160105
  4. IXABEPILONE [Suspect]
     Active Substance: IXABEPILONE
     Dosage: 45 MG, ONCE
     Route: 042
     Dates: start: 20160223, end: 20160223

REACTIONS (8)
  - Dizziness [Unknown]
  - Vomiting [Unknown]
  - Vein disorder [Unknown]
  - Drug dose omission [Unknown]
  - Syncope [Unknown]
  - Fatigue [Unknown]
  - Malaise [Unknown]
  - Complication associated with device [Unknown]

NARRATIVE: CASE EVENT DATE: 20151126
